FAERS Safety Report 4793835-7 (Version None)
Quarter: 2005Q4

REPORT INFORMATION
  Report Type: 
  Country: None (occurrence: None)
  Receive Date: 20051011
  Receipt Date: 20051004
  Transmission Date: 20060501
  Serious: Yes (Hospitalization)
  Sender: FDA-Public Use
  Company Number: FR-SANOFI-SYNTHELABO-A02200502611

PATIENT
  Sex: Female
  Weight: 43 kg

DRUGS (7)
  1. ELOXATIN [Suspect]
     Indication: COLORECTAL CANCER METASTATIC
     Route: 042
     Dates: start: 20050808, end: 20050808
  2. FLUOROURACIL [Concomitant]
     Route: 040
     Dates: start: 20050808, end: 20050808
  3. FLUOROURACIL [Concomitant]
     Route: 041
     Dates: start: 20050808, end: 20050809
  4. CALCIUM FOLINATE [Concomitant]
     Indication: COLORECTAL CANCER METASTATIC
     Route: 042
     Dates: start: 20050808, end: 20050808
  5. PRIMPERAN INJ [Concomitant]
     Dosage: UNK
     Route: 065
  6. ONDANSETRON [Concomitant]
     Dosage: UNK
     Route: 065
  7. CORTANCYL [Concomitant]
     Dosage: UNK
     Route: 065

REACTIONS (14)
  - DIARRHOEA HAEMORRHAGIC [None]
  - DYSPHAGIA [None]
  - GENERAL PHYSICAL HEALTH DETERIORATION [None]
  - HYPOKALAEMIA [None]
  - INFUSION RELATED REACTION [None]
  - LARYNGOSPASM [None]
  - MUCOSAL INFLAMMATION [None]
  - MUSCLE SPASMS [None]
  - NAUSEA [None]
  - NEUROPATHY PERIPHERAL [None]
  - PAIN IN EXTREMITY [None]
  - PANCYTOPENIA [None]
  - PYREXIA [None]
  - RESPIRATORY DISTRESS [None]
